FAERS Safety Report 25916612 (Version 1)
Quarter: 2025Q4

REPORT INFORMATION
  Report Type: Spontaneous
  Country: GB (occurrence: GB)
  Receive Date: 20251014
  Receipt Date: 20251014
  Transmission Date: 20260118
  Serious: Yes (Other)
  Sender: AUROBINDO
  Company Number: GB-MHRA-TPP30667140C32253215YC1759321706443

PATIENT
  Age: 52 Year
  Sex: Female
  Weight: 99 kg

DRUGS (10)
  1. AMOXICILLIN\CLAVULANIC ACID [Suspect]
     Active Substance: AMOXICILLIN\CLAVULANIC ACID
     Indication: Product used for unknown indication
     Dosage: TAKE ONE THREE TIMES A DAY FOR 10 DAYS
     Route: 065
     Dates: start: 20250925
  2. DOXYCYCLINE [Concomitant]
     Active Substance: DOXYCYCLINE
     Indication: Ill-defined disorder
     Dosage: ACUTE COUGH: TAKE TWO CAPSULES ON THE FIRST DAY...
     Route: 065
     Dates: start: 20250709, end: 20250714
  3. MOUNJARO [Concomitant]
     Active Substance: TIRZEPATIDE
     Indication: Ill-defined disorder
     Dosage: PRIVATE WEIGHT LOSS MEDICATION2.5MG ONCE A WEEK
     Route: 065
     Dates: start: 20250828
  4. CLARITHROMYCIN [Concomitant]
     Active Substance: CLARITHROMYCIN
     Indication: Ill-defined disorder
     Dosage: UNK UNK, TWO TIMES A DAY (ACUTE SORE THROAT: TAKE ONE TWICE A DAY FOR 5 DAYS)
     Route: 065
     Dates: start: 20250926, end: 20251001
  5. FLUTICASONE FUROATE [Concomitant]
     Active Substance: FLUTICASONE FUROATE
     Indication: Ill-defined disorder
     Dosage: TWO SQUIRTS INTO EACH NOSTRIL ONCE A DAY, WHEN ...
     Route: 045
     Dates: start: 20250925
  6. AMITRIPTYLINE HYDROCHLORIDE [Concomitant]
     Active Substance: AMITRIPTYLINE HYDROCHLORIDE
     Indication: Ill-defined disorder
     Dosage: TAKE TWO EVERY NIGHT TO HELP PREVENT MIGRAINES
     Route: 065
     Dates: start: 20240119
  7. LEVOTHYROXINE [Concomitant]
     Active Substance: LEVOTHYROXINE
     Indication: Ill-defined disorder
     Dosage: UNK UNK, ONCE A DAY (TAKE ONE DAILY)
     Route: 065
     Dates: start: 20240119
  8. RIZATRIPTAN [Concomitant]
     Active Substance: RIZATRIPTAN
     Indication: Ill-defined disorder
     Dosage: UNK UNK, AS DIRECTED (TAKE ONE AS DIRECTED)
     Route: 065
     Dates: start: 20240215
  9. INCRUSE ELLIPTA [Concomitant]
     Active Substance: UMECLIDINIUM BROMIDE
     Indication: Ill-defined disorder
     Dosage: UNK UNK, ONCE A DAY (INHALE ONE DOSE DAILY)
     Dates: start: 20240709
  10. ALBUTEROL [Concomitant]
     Active Substance: ALBUTEROL
     Indication: Ill-defined disorder
     Dosage: UNK UNK, AS NECESSARY (INHALE 2 DOSES AS NEEDED0
     Dates: start: 20250214

REACTIONS (2)
  - Swollen tongue [Unknown]
  - Rash pruritic [Recovered/Resolved]

NARRATIVE: CASE EVENT DATE: 20250927
